FAERS Safety Report 8635038 (Version 2)
Quarter: 2013Q4

REPORT INFORMATION
  Report Type: Spontaneous
  Country: JP (occurrence: JP)
  Receive Date: 20120626
  Receipt Date: 20131017
  Transmission Date: 20140711
  Serious: No
  Sender: FDA-Public Use
  Company Number: JP-PFIZER INC-2012150851

PATIENT
  Age: 79 Year
  Sex: Male

DRUGS (2)
  1. TENORMIN [Suspect]
     Indication: HYPERTENSION
     Dosage: 50 MG, 1X/DAY
     Route: 048
  2. URIEF [Suspect]
     Indication: BENIGN PROSTATIC HYPERPLASIA
     Dosage: 8 MG, 2X/DAY
     Route: 048

REACTIONS (1)
  - Tongue disorder [Unknown]
